FAERS Safety Report 7308824-8 (Version None)
Quarter: 2011Q1

REPORT INFORMATION
  Report Type: 
  Country: None (occurrence: None)
  Receive Date: 20110223
  Receipt Date: 20110218
  Transmission Date: 20110831
  Serious: Yes (Death)
  Sender: FDA-Public Use
  Company Number: PHHY2011US14297

PATIENT
  Sex: Female

DRUGS (43)
  1. DOCUSATE SODIUM [Concomitant]
     Dosage: UNK
  2. ASCORBIC ACID [Concomitant]
     Dosage: UNK
  3. ASPIRIN [Concomitant]
     Dosage: UNK
  4. OXYCODONE AND ASPIRIN [Concomitant]
     Dosage: UNK
  5. SULFASALAZINE [Concomitant]
     Dosage: UNK
  6. NITROGLYCERIN [Concomitant]
  7. RECLAST [Suspect]
     Dosage: 5 MG
     Route: 042
     Dates: start: 20110216
  8. HYDROXYCHLOROQUINE SULFATE [Concomitant]
     Dosage: UNK
  9. SEROQUEL [Concomitant]
     Dosage: UNK
  10. TRIMETHOBENZAMIDE HCL [Concomitant]
     Dosage: UNK
  11. PREDNISONE [Concomitant]
     Dosage: UNK
  12. EXELON [Concomitant]
     Dosage: 1.5 MG
  13. CARVEDIL [Concomitant]
     Dosage: UNK
  14. FUROSEMIDE [Concomitant]
     Dosage: UNK
  15. PACERONE [Concomitant]
     Dosage: UNK
  16. LORAZEPAM [Concomitant]
  17. ZOLOFT [Concomitant]
     Dosage: UNK
  18. MEGESTROL ACETATE [Concomitant]
  19. VITAMIN D [Concomitant]
     Dosage: UNK
  20. LEVOTHYROXINE SODIUM [Concomitant]
     Dosage: UNK
  21. CYTOMEL [Concomitant]
     Dosage: UNK
  22. AMIODARONE [Concomitant]
     Dosage: UNK
  23. HYDROMORFON [Concomitant]
     Dosage: UNK
  24. METHENAMINE HIPPURATE [Concomitant]
  25. FOLIC ACID [Concomitant]
     Dosage: UNK
  26. PROTONIX [Concomitant]
     Dosage: UNK
  27. VITAMIN E [Concomitant]
     Dosage: UNK
  28. LISINOPRIL [Concomitant]
  29. TEMAZEPAM [Concomitant]
     Dosage: UNK
  30. ENSURE PLUS [Concomitant]
     Dosage: UNK
  31. SENNA [Concomitant]
     Dosage: UNK
  32. MIRALAX [Concomitant]
  33. MIRAPEX [Concomitant]
  34. LAMOTRIGINE [Concomitant]
     Dosage: UNK
  35. METHENAMINE MANDELATE [Concomitant]
     Dosage: UNK
  36. BENADRYL [Concomitant]
     Dosage: UNK
  37. PRAVASTATIN SODIUM [Concomitant]
     Dosage: UNK
  38. NITROGLYCERIN [Concomitant]
     Dosage: UNK
  39. LAMICTAL [Concomitant]
     Dosage: UNK
  40. MULTI-VITAMINS [Concomitant]
     Dosage: UNK
  41. VOLTAREN [Concomitant]
     Dosage: UNK
  42. SPIRONOLACTONE [Concomitant]
     Dosage: UNK
  43. VITAMIN B-12 [Concomitant]
     Dosage: UNK

REACTIONS (1)
  - DEATH [None]
